FAERS Safety Report 14229779 (Version 1)
Quarter: 2017Q4

REPORT INFORMATION
  Report Type: Spontaneous
  Country: US (occurrence: US)
  Receive Date: 20171128
  Receipt Date: 20171128
  Transmission Date: 20180321
  Serious: Yes (Congenital Anomaly)
  Sender: FDA-Public Use
  Company Number: US-ANTARES PHARMA, INC.-2016-LIT-ME-0352

PATIENT
  Age: 35 Week
  Sex: Male
  Weight: 1.55 kg

DRUGS (2)
  1. METHOTREXATE. [Suspect]
     Active Substance: METHOTREXATE
     Indication: OFF LABEL USE
  2. METHOTREXATE. [Suspect]
     Active Substance: METHOTREXATE
     Indication: ABORTION INDUCED

REACTIONS (8)
  - Craniosynostosis [Recovered/Resolved]
  - Skull malformation [Not Recovered/Not Resolved]
  - Low set ears [Recovered/Resolved]
  - Clinodactyly [Recovered/Resolved]
  - Foetal exposure during pregnancy [Unknown]
  - High arched palate [Recovered/Resolved]
  - Dysmorphism [Recovered/Resolved]
  - Skin hyperpigmentation [Unknown]
